FAERS Safety Report 9186427 (Version 2)
Quarter: 2013Q2

REPORT INFORMATION
  Report Type: Spontaneous
  Country: GB (occurrence: GB)
  Receive Date: 20130325
  Receipt Date: 20130415
  Transmission Date: 20140414
  Serious: Yes (Hospitalization, Other)
  Sender: FDA-Public Use
  Company Number: GB-ASTRAZENECA-2013SE17515

PATIENT
  Sex: Male

DRUGS (6)
  1. BRILIQUE [Suspect]
     Indication: ACUTE CORONARY SYNDROME
     Route: 048
     Dates: start: 20130302, end: 20130313
  2. ASPIRIN [Concomitant]
     Indication: ACUTE CORONARY SYNDROME
     Route: 048
     Dates: start: 20130302
  3. EPLERENONE [Concomitant]
     Indication: ACUTE CORONARY SYNDROME
     Route: 048
     Dates: start: 20130303
  4. BISOPROLOL [Concomitant]
     Indication: ACUTE CORONARY SYNDROME
     Route: 048
     Dates: start: 20130302
  5. ATORVASTATIN [Concomitant]
     Indication: ACUTE CORONARY SYNDROME
     Route: 048
     Dates: start: 20130302
  6. PERINDOPRIL [Concomitant]
     Indication: ACUTE CORONARY SYNDROME
     Route: 048
     Dates: start: 20130302

REACTIONS (2)
  - Cerebellar infarction [Recovering/Resolving]
  - Acute myocardial infarction [Unknown]
